FAERS Safety Report 8594311 (Version 5)
Quarter: 2017Q1

REPORT INFORMATION
  Report Type: Report from Study
  Country: US (occurrence: US)
  Receive Date: 20120604
  Receipt Date: 20170314
  Transmission Date: 20170429
  Serious: Yes (Other)
  Sender: FDA-Public Use
  Company Number: US-ROCHE-1072111

PATIENT

DRUGS (3)
  1. BEVACIZUMAB [Suspect]
     Active Substance: BEVACIZUMAB
     Indication: OESOPHAGEAL ADENOCARCINOMA
     Dosage: WEEKS 1 AND 4
     Route: 042
  2. CISPLATIN. [Suspect]
     Active Substance: CISPLATIN
     Indication: OESOPHAGEAL ADENOCARCINOMA
     Dosage: WEEKS 1,2,4,5
     Route: 042
  3. IRINOTECAN [Suspect]
     Active Substance: IRINOTECAN
     Indication: OESOPHAGEAL ADENOCARCINOMA
     Dosage: 50-65 MG/M2
     Route: 042

REACTIONS (12)
  - Leukopenia [Unknown]
  - Cerebrovascular accident [Unknown]
  - Thrombosis [Unknown]
  - Hyperbilirubinaemia [Unknown]
  - Deep vein thrombosis [Unknown]
  - Perforation [Unknown]
  - Neutropenia [Unknown]
  - Febrile neutropenia [Unknown]
  - Thrombocytopenia [Unknown]
  - Infection [Unknown]
  - Oesophagitis [Unknown]
  - Anaemia [Unknown]
